FAERS Safety Report 7449060-4 (Version None)
Quarter: 2011Q2

REPORT INFORMATION
  Report Type: 
  Country: None (occurrence: None)
  Receive Date: 20110501
  Receipt Date: 20110426
  Transmission Date: 20111010
  Serious: Yes (Other)
  Sender: FDA-Public Use
  Company Number: US-BRISTOL-MYERS SQUIBB COMPANY-15681984

PATIENT
  Age: 27 Year
  Sex: Female

DRUGS (8)
  1. ONDANSETRON [Concomitant]
  2. OXYCODONE HCL [Suspect]
     Indication: BACK PAIN
     Dosage: AT LEAST 5 TIMES DAILY.
  3. DEXAMETHASONE [Concomitant]
  4. DOCETAXEL [Suspect]
  5. ZOLEDRONIC ACID [Concomitant]
     Route: 042
  6. FLUOROURACIL [Suspect]
  7. CISPLATIN [Suspect]
  8. LORAZEPAM [Concomitant]

REACTIONS (2)
  - NEUTROPENIA [None]
  - INTESTINAL FUNCTIONAL DISORDER [None]
